FAERS Safety Report 5620902-8 (Version None)
Quarter: 2008Q1

REPORT INFORMATION
  Report Type: 
  Country: None (occurrence: None)
  Receive Date: 20080208
  Receipt Date: 20080125
  Transmission Date: 20080703
  Serious: Yes (Other)
  Sender: FDA-Public Use
  Company Number: US-ELI_LILLY_AND_COMPANY-US200801004077

PATIENT
  Sex: Male
  Weight: 73.016 kg

DRUGS (9)
  1. SOMATROPIN [Suspect]
     Indication: HYPOPITUITARISM
     Dosage: 0.1 MG, DAILY (1/D)
     Route: 058
     Dates: start: 20060928
  2. TESTIM [Concomitant]
     Dosage: 5 G, DAILY (1/D)
  3. SYNTHROID [Concomitant]
     Dosage: 125 UG, DAILY (1/D)
  4. LAMICTAL [Concomitant]
     Dosage: 125 MG, DAILY (1/D)
  5. PROTONIX [Concomitant]
     Dosage: 40 MG, DAILY (1/D)
  6. M.V.I. [Concomitant]
     Dosage: UNK, DAILY (1/D)
  7. FLAXSEED OIL [Concomitant]
     Dosage: 3 D/F, UNK
  8. FOLIC ACID [Concomitant]
     Dosage: 1 MG, DAILY (1/D)
  9. CORTEF [Concomitant]
     Dosage: 10 MG, DAILY (1/D)

REACTIONS (1)
  - COMA [None]
